FAERS Safety Report 16437318 (Version 2)
Quarter: 2019Q3

REPORT INFORMATION
  Report Type: Report from Study
  Country: None (occurrence: CO)
  Receive Date: 20190615
  Receipt Date: 20190711
  Transmission Date: 20191004
  Serious: Yes (Other)
  Sender: FDA-Public Use
  Company Number: CO-ABBVIE-19K-036-2821838-00

PATIENT
  Age: 13 Year
  Sex: Female
  Weight: 44 kg

DRUGS (2)
  1. HUMIRA [Suspect]
     Active Substance: ADALIMUMAB
     Indication: JUVENILE IDIOPATHIC ARTHRITIS
     Route: 058
     Dates: start: 20161208
  2. HUMIRA [Suspect]
     Active Substance: ADALIMUMAB
     Indication: JUVENILE IDIOPATHIC ARTHRITIS
     Route: 058

REACTIONS (5)
  - Nerve injury [Recovering/Resolving]
  - Limb injury [Recovering/Resolving]
  - Fall [Recovering/Resolving]
  - Injury [Unknown]
  - Rhinitis [Recovering/Resolving]

NARRATIVE: CASE EVENT DATE: 2017
